FAERS Safety Report 4948250-X (Version None)
Quarter: 2006Q1

REPORT INFORMATION
  Report Type: 
  Country: None (occurrence: None)
  Receive Date: 20060127
  Receipt Date: 20050228
  Transmission Date: 20060701
  Serious: Yes (Hospitalization)
  Sender: FDA-Public Use
  Company Number: 05-02-0305

PATIENT
  Age: 59 Year
  Sex: Female

DRUGS (1)
  1. CLOZAPINE [Suspect]
     Indication: SCHIZOPHRENIA
     Dosage: 25MG QD,  ORAL
     Route: 048
     Dates: start: 20040401

REACTIONS (3)
  - BALANCE DISORDER [None]
  - FALL [None]
  - PSYCHIATRIC SYMPTOM [None]
